FAERS Safety Report 25278866 (Version 2)
Quarter: 2025Q2

REPORT INFORMATION
  Report Type: Spontaneous
  Country: FR (occurrence: FR)
  Receive Date: 20250507
  Receipt Date: 20250603
  Transmission Date: 20250716
  Serious: Yes (Hospitalization)
  Sender: PFIZER
  Company Number: None

PATIENT
  Age: 57 Year
  Sex: Male

DRUGS (13)
  1. PIPERACILLIN SODIUM\TAZOBACTAM SODIUM [Suspect]
     Active Substance: PIPERACILLIN SODIUM\TAZOBACTAM SODIUM
     Indication: Infection
     Dosage: 12 G, 1X/DAY
     Route: 042
     Dates: start: 20250221, end: 20250401
  2. AMOXICILLIN [Suspect]
     Active Substance: AMOXICILLIN
     Indication: Infection
     Dosage: 6 G, 1X/DAY
     Route: 048
     Dates: start: 20250401, end: 20250409
  3. GABAPENTIN [Suspect]
     Active Substance: GABAPENTIN
     Indication: Pain
     Dosage: 300 MG, 1X/DAY
     Route: 048
     Dates: start: 20250111, end: 20250312
  4. GABAPENTIN [Suspect]
     Active Substance: GABAPENTIN
     Dosage: 600 MG, 1X/DAY
     Route: 048
     Dates: start: 20250312, end: 20250319
  5. GABAPENTIN [Suspect]
     Active Substance: GABAPENTIN
     Dosage: 900 MG, 1X/DAY
     Route: 048
     Dates: start: 20250319, end: 20250411
  6. OXYCODONE [Suspect]
     Active Substance: OXYCODONE
     Indication: Pain
     Dosage: 15 MG, 1X/DAY
     Route: 048
     Dates: start: 20250222, end: 20250410
  7. PERINDOPRIL [Concomitant]
     Active Substance: PERINDOPRIL
     Dosage: 5 MG, 1X/DAY
     Route: 048
     Dates: end: 20250408
  8. INDAPAMIDE [Concomitant]
     Active Substance: INDAPAMIDE
     Dosage: 5 MG, 1X/DAY
     Route: 048
     Dates: end: 20250408
  9. AMLODIPINE [Concomitant]
     Active Substance: AMLODIPINE BESYLATE
     Dosage: 5 MG, 1X/DAY
     Route: 048
  10. ATORVASTATIN [Concomitant]
     Active Substance: ATORVASTATIN
     Dosage: 40 MG, 1X/DAY
     Route: 048
  11. EZETIMIBE [Concomitant]
     Active Substance: EZETIMIBE
     Dosage: 10 MG, 1X/DAY
     Route: 048
  12. ASPIRIN [Concomitant]
     Active Substance: ASPIRIN
     Dosage: 1 DF, 1X/DAY
     Route: 048
  13. ELIQUIS [Concomitant]
     Active Substance: APIXABAN
     Dosage: 10 MG, 1X/DAY
     Route: 048

REACTIONS (3)
  - Acute kidney injury [Recovered/Resolved]
  - Cholestatic liver injury [Recovered/Resolved]
  - Eosinophilia [Recovered/Resolved]

NARRATIVE: CASE EVENT DATE: 20250317
